FAERS Safety Report 6105136 (Version 4)
Quarter: 2018Q2

REPORT INFORMATION
  Report Type: Report from Study
  Country: JP (occurrence: JP)
  Receive Date: 20060811
  Receipt Date: 20180503
  Transmission Date: 20180711
  Serious: Yes (Life-Threatening, Hospitalization, Other)
  Sender: FDA-Public Use
  Company Number: JP-GILEAD-2006-0009943

PATIENT
  Age: 49 Year
  Sex: Male

DRUGS (9)
  1. ZERIT [Suspect]
     Active Substance: STAVUDINE
     Route: 048
     Dates: start: 20010906, end: 20040704
  2. MONILAC [Concomitant]
     Active Substance: LACTULOSE
     Dates: start: 20040401, end: 20050424
  3. RECOMBINATE [Concomitant]
     Active Substance: ANTIHEMOPHILIC FACTOR, HUMAN RECOMBINANT
     Dates: start: 20040401
  4. TENOFOVIR DISOPROXIL FUMARATE. [Suspect]
     Active Substance: TENOFOVIR DISOPROXIL FUMARATE
     Indication: HIV INFECTION
     Route: 048
     Dates: start: 20050307
  5. STOCRIN [Suspect]
     Active Substance: EFAVIRENZ
     Indication: HIV INFECTION
     Route: 048
     Dates: start: 20050411
  6. VIDEX EC [Suspect]
     Active Substance: DIDANOSINE
     Indication: HIV INFECTION
     Route: 048
     Dates: start: 20010906, end: 20050201
  7. EPIVIR [Suspect]
     Active Substance: LAMIVUDINE
     Indication: HIV INFECTION
     Route: 048
     Dates: start: 20050307
  8. ZERIT [Suspect]
     Active Substance: STAVUDINE
     Indication: HIV INFECTION
     Route: 048
     Dates: start: 20040705, end: 20050201
  9. VIRACEPT [Suspect]
     Active Substance: NELFINAVIR MESYLATE
     Indication: HIV INFECTION
     Route: 048
     Dates: start: 20010906, end: 20041206

REACTIONS (2)
  - Osteoporotic fracture [Recovering/Resolving]
  - Cerebellar haemorrhage [Recovered/Resolved]

NARRATIVE: CASE EVENT DATE: 20050424
